FAERS Safety Report 5693382-4 (Version None)
Quarter: 2008Q2

REPORT INFORMATION
  Report Type: 
  Country: None (occurrence: None)
  Receive Date: 20080403
  Receipt Date: 20071112
  Transmission Date: 20081010
  Serious: No
  Sender: FDA-Public Use
  Company Number: US-BAYER-US-2007-043127

PATIENT
  Sex: Female

DRUGS (1)
  1. MIRENA [Suspect]
     Route: 015
     Dates: start: 20070705

REACTIONS (4)
  - BACK PAIN [None]
  - METRORRHAGIA [None]
  - URTICARIA [None]
  - VISION BLURRED [None]
